FAERS Safety Report 15188530 (Version 1)
Quarter: 2018Q3

REPORT INFORMATION
  Report Type: Spontaneous
  Country: US (occurrence: US)
  Receive Date: 20180724
  Receipt Date: 20180724
  Transmission Date: 20181010
  Serious: No
  Sender: FDA-Public Use
  Company Number: US-009507513-1806USA012754

PATIENT
  Sex: Female

DRUGS (1)
  1. BELSOMRA [Suspect]
     Active Substance: SUVOREXANT
     Dosage: 1 TABLET (10MG) DAILY AT BEDTIME
     Route: 048

REACTIONS (3)
  - Product quality issue [Unknown]
  - Product use issue [Unknown]
  - No adverse event [Unknown]
